FAERS Safety Report 8027647-8 (Version None)
Quarter: 2011Q4

REPORT INFORMATION
  Report Type: 
  Country: None (occurrence: None)
  Receive Date: 20111130
  Receipt Date: 20110509
  Transmission Date: 20120403
  Serious: Yes (Hospitalization, Other)
  Sender: FDA-Public Use
  Company Number: US201005000625

PATIENT
  Sex: Male
  Weight: 142.4 kg

DRUGS (3)
  1. EXENATIDE UNK STRENGTH PEN, DISPOSABLE DEVICE (EXENATIDE PEN (UNKNOWN [Concomitant]
  2. BYETTA [Suspect]
  3. METFORMIN HCL [Concomitant]

REACTIONS (3)
  - RENAL FAILURE ACUTE [None]
  - PANCREATITIS [None]
  - RENAL FAILURE [None]
